FAERS Safety Report 4644363-0 (Version None)
Quarter: 2005Q2

REPORT INFORMATION
  Report Type: 
  Country: None (occurrence: None)
  Receive Date: 20050331
  Receipt Date: 20041221
  Transmission Date: 20051028
  Serious: No
  Sender: FDA-Public Use
  Company Number: 04P-163-0284314-00

PATIENT
  Age: 52 Year
  Sex: Female

DRUGS (9)
  1. HUMIRA [Suspect]
     Indication: RHEUMATOID ARTHRITIS
     Dosage: 40 MG, 1 IN 2 WK, SUBCUTANEOUS
     Route: 058
     Dates: start: 20040101
  2. PREDNISONE [Concomitant]
  3. NAPROXEN [Concomitant]
  4. SINGULAIR [Concomitant]
  5. IRON [Concomitant]
  6. ASCORBIC ACID [Concomitant]
  7. HYDROCHLOROTHIAZIDE [Concomitant]
  8. BLOOD PRESSURE [Concomitant]
  9. PAROXETINE HYDROCHLORIDE [Concomitant]

REACTIONS (1)
  - HYPOAESTHESIA [None]
